FAERS Safety Report 6590675-3 (Version None)
Quarter: 2010Q1

REPORT INFORMATION
  Report Type: 
  Country: None (occurrence: None)
  Receive Date: 20100219
  Receipt Date: 20100209
  Transmission Date: 20100710
  Serious: Yes (Other)
  Sender: FDA-Public Use
  Company Number: B0632220A

PATIENT
  Sex: Male

DRUGS (4)
  1. DEROXAT [Suspect]
     Indication: DRUG USE FOR UNKNOWN INDICATION
     Route: 048
     Dates: start: 20100109, end: 20100109
  2. LIDOCAINE [Concomitant]
     Indication: HERPES ZOSTER
     Route: 061
     Dates: start: 20100107, end: 20100109
  3. RIVOTRIL [Concomitant]
     Indication: HERPES ZOSTER
     Route: 048
     Dates: start: 20100104, end: 20100109
  4. PREDNISONE [Concomitant]
     Dosage: 20MG PER DAY
     Route: 065

REACTIONS (1)
  - ACUTE GENERALISED EXANTHEMATOUS PUSTULOSIS [None]
